FAERS Safety Report 25882114 (Version 2)
Quarter: 2025Q4

REPORT INFORMATION
  Report Type: Spontaneous
  Country: CN (occurrence: CN)
  Receive Date: 20251006
  Receipt Date: 20251010
  Transmission Date: 20260118
  Serious: Yes (Hospitalization, Disabling, Other)
  Sender: MACLEODS
  Company Number: CN-MACLEODS PHARMA-MAC2025055571

PATIENT

DRUGS (2)
  1. TRIAMCINOLONE [Suspect]
     Active Substance: TRIAMCINOLONE
     Indication: Endocrine ophthalmopathy
     Dosage: RECEIVED 5 PERIBULBAR INJECTIONS
     Route: 065
  2. METHIMAZOLE [Concomitant]
     Active Substance: METHIMAZOLE
     Indication: Thyroid disorder
     Route: 048

REACTIONS (3)
  - Central serous chorioretinopathy [Recovered/Resolved]
  - Detachment of retinal pigment epithelium [Recovered/Resolved]
  - Metamorphopsia [Unknown]
